FAERS Safety Report 16093079 (Version 1)
Quarter: 2019Q1

REPORT INFORMATION
  Report Type: Spontaneous
  Country: US (occurrence: US)
  Receive Date: 20190320
  Receipt Date: 20190320
  Transmission Date: 20190418
  Serious: No
  Sender: FDA-Public Use
  Company Number: US-TEVA-2019-US-1018543

PATIENT
  Sex: Female
  Weight: 63.56 kg

DRUGS (2)
  1. LORAZEPAM ACTAVIS [Suspect]
     Active Substance: LORAZEPAM
     Indication: ANXIETY
     Dosage: 2 DOSAGE FORMS DAILY; AT NIGHT
     Route: 048
  2. LORAZEPAM ACTAVIS [Suspect]
     Active Substance: LORAZEPAM
     Indication: SLEEP DISORDER

REACTIONS (2)
  - Drug ineffective [Unknown]
  - Product use in unapproved indication [Unknown]
